FAERS Safety Report 19924251 (Version 2)
Quarter: 2021Q4

REPORT INFORMATION
  Report Type: Spontaneous
  Country: JP (occurrence: JP)
  Receive Date: 20211006
  Receipt Date: 20211206
  Transmission Date: 20220303
  Serious: Yes (Death, Other)
  Sender: FDA-Public Use
  Company Number: JP-TAKEDA-2021TJP100157

PATIENT
  Age: 72 Year
  Sex: Male
  Weight: 79.6 kg

DRUGS (15)
  1. ADCETRIS [Suspect]
     Active Substance: BRENTUXIMAB VEDOTIN
     Indication: Peripheral T-cell lymphoma unspecified
     Dosage: 100 MILLIGRAM, QD
     Route: 041
     Dates: start: 20210915, end: 20210915
  2. ADCETRIS [Suspect]
     Active Substance: BRENTUXIMAB VEDOTIN
     Indication: Anaplastic large-cell lymphoma
  3. PREDONINE [Suspect]
     Active Substance: PREDNISOLONE
     Indication: Chemotherapy
     Dosage: 35 MILLIGRAM, BID
     Route: 048
     Dates: start: 20210915, end: 20210920
  4. CYCLOPHOSPHAMIDE [Suspect]
     Active Substance: CYCLOPHOSPHAMIDE
     Indication: Chemotherapy
     Dosage: 1000 MILLIGRAM, QD
     Route: 041
     Dates: start: 20210915, end: 20210915
  5. ADRIACIN [Suspect]
     Active Substance: DOXORUBICIN HYDROCHLORIDE
     Indication: Chemotherapy
     Dosage: 65 MILLIGRAM, QD
     Route: 041
     Dates: start: 20210915, end: 20210915
  6. URSODIOL [Concomitant]
     Active Substance: URSODIOL
     Indication: Hepatic cirrhosis
     Dosage: 200 MILLIGRAM, TID
     Route: 048
     Dates: start: 20210818, end: 20210920
  7. ISOLEUCINE\LEUCINE\VALINE [Concomitant]
     Active Substance: ISOLEUCINE\LEUCINE\VALINE
     Indication: Hepatic cirrhosis
     Dosage: 1 DOSAGE FORM, TID
     Route: 048
     Dates: start: 20210818, end: 20210920
  8. NIFEDIPINE [Concomitant]
     Active Substance: NIFEDIPINE
     Indication: Hypertension
     Dosage: 40 MILLIGRAM, QD
     Route: 048
     Dates: start: 20210818, end: 20210920
  9. TELMISARTAN [Concomitant]
     Active Substance: TELMISARTAN
     Indication: Hypertension
     Dosage: 40 MILLIGRAM, BID
     Route: 048
     Dates: start: 20210818, end: 20210920
  10. INSULIN LISPRO [Concomitant]
     Active Substance: INSULIN LISPRO
     Indication: Diabetes mellitus
     Dosage: UNK, QD
     Route: 058
     Dates: start: 20210818, end: 20210920
  11. JANUVIA [Concomitant]
     Active Substance: SITAGLIPTIN PHOSPHATE
     Indication: Diabetes mellitus
     Dosage: 50 MILLIGRAM, QD
     Route: 048
     Dates: start: 20210818, end: 20210915
  12. FIBLAST [Concomitant]
     Indication: Skin ulcer
     Dosage: UNK, QD
     Route: 050
     Dates: start: 20210909, end: 20210920
  13. GRANISETRON [Concomitant]
     Active Substance: GRANISETRON
     Indication: Chemotherapy
     Dosage: 1 MILLIGRAM, QD
     Route: 041
     Dates: start: 20210915, end: 20210915
  14. APREPITANT [Concomitant]
     Active Substance: APREPITANT
     Indication: Chemotherapy
     Dosage: 125 MILLIGRAM, QD
     Route: 048
     Dates: start: 20210915, end: 20210915
  15. APREPITANT [Concomitant]
     Active Substance: APREPITANT
     Dosage: 80 MILLIGRAM, QD
     Route: 048
     Dates: start: 20210916, end: 20210917

REACTIONS (3)
  - Hepatic function abnormal [Fatal]
  - Fluid retention [Fatal]
  - Cardiac failure [Fatal]

NARRATIVE: CASE EVENT DATE: 20210918
